FAERS Safety Report 7505294-1 (Version None)
Quarter: 2011Q2

REPORT INFORMATION
  Report Type: 
  Country: None (occurrence: None)
  Receive Date: 20110518
  Receipt Date: 20110511
  Transmission Date: 20111010
  Serious: Yes (Hospitalization)
  Sender: FDA-Public Use
  Company Number: WAES 1104USA00663

PATIENT
  Age: 66 Year
  Sex: Female

DRUGS (4)
  1. ASPIRIN [Concomitant]
  2. PLACEBO [Suspect]
     Indication: TYPE 2 DIABETES MELLITUS
     Dosage: 0.25 MG/WKY SC
     Route: 058
     Dates: start: 20100401
  3. JANUVIA [Suspect]
     Dosage: PO
     Route: 048
     Dates: start: 20100401
  4. METOPROLOL TARTRATE [Suspect]
     Indication: MYOCARDIAL INFARCTION

REACTIONS (1)
  - MYOCARDIAL INFARCTION [None]
